FAERS Safety Report 25589453 (Version 4)
Quarter: 2025Q3

REPORT INFORMATION
  Report Type: Report from Study
  Country: US (occurrence: US)
  Receive Date: 20250722
  Receipt Date: 20250925
  Transmission Date: 20251021
  Serious: No
  Sender: SUNOVION
  Company Number: US-SUMITOMO PHARMA SWITZERLAND GMBH-2025SPA008730

PATIENT
  Age: 74 Year
  Sex: Male

DRUGS (39)
  1. ORGOVYX [Suspect]
     Active Substance: RELUGOLIX
     Indication: Prostate cancer
     Route: 048
     Dates: start: 20250630, end: 20250630
  2. ORGOVYX [Suspect]
     Active Substance: RELUGOLIX
     Route: 048
  3. Alage Cal [Concomitant]
  4. HERBALS\WITHANIA SOMNIFERA ROOT [Concomitant]
     Active Substance: HERBALS\WITHANIA SOMNIFERA ROOT
  5. BILBERRY [Concomitant]
     Active Substance: BILBERRY
  6. BIOTIN [Concomitant]
     Active Substance: BIOTIN
  7. CVS Daily Multivitamin Men^s [Concomitant]
  8. CVS Vision Health [Concomitant]
  9. HERBALS [Concomitant]
     Active Substance: HERBALS
  10. FISH OIL [Concomitant]
     Active Substance: FISH OIL
  11. MAGNESIUM OXIDE [Concomitant]
     Active Substance: MAGNESIUM OXIDE
  12. METFORMIN HYDROCHLORIDE [Concomitant]
     Active Substance: METFORMIN HYDROCHLORIDE
  13. METHENAMINE HIPPURATE [Concomitant]
     Active Substance: METHENAMINE HIPPURATE
  14. NIACINAMIDE [Concomitant]
     Active Substance: NIACINAMIDE
  15. QC Turmeric Complex [Concomitant]
  16. TAMSULOSIN HYDROCHLORIDE [Concomitant]
     Active Substance: TAMSULOSIN HYDROCHLORIDE
  17. Up4 Probiotics Men^s [Concomitant]
  18. VITAMIN C [Concomitant]
     Active Substance: ASCORBIC ACID
  19. VITAMIN D3 [Concomitant]
     Active Substance: CHOLECALCIFEROL
  20. NUBEQA [Concomitant]
     Active Substance: DAROLUTAMIDE
  21. STRONTIUM [Concomitant]
     Active Substance: STRONTIUM
  22. BETA CAROTENE [Concomitant]
     Active Substance: BETA CAROTENE
  23. TEA [Concomitant]
     Active Substance: TEA LEAF
  24. HERBALS\HONEY [Concomitant]
     Active Substance: HERBALS\HONEY
  25. OREGANO [Concomitant]
     Active Substance: OREGANO
  26. THYME [Concomitant]
     Active Substance: THYME
  27. PEPPERMINT [Concomitant]
     Active Substance: PEPPERMINT
  28. PARSLEY [Concomitant]
     Active Substance: PARSLEY
  29. ROSUVASTATIN [Concomitant]
     Active Substance: ROSUVASTATIN
  30. Mushroom 5 complex [Concomitant]
  31. Tulsi [Concomitant]
  32. PROBIOTICS NOS [Concomitant]
     Active Substance: PROBIOTICS NOS
  33. Vision [Concomitant]
  34. Vitamin D3 K2 [Concomitant]
  35. TRIBASIC CALCIUM PHOSPHATE [Concomitant]
     Active Substance: TRIBASIC CALCIUM PHOSPHATE
  36. CALCIUM [Concomitant]
     Active Substance: CALCIUM
  37. VITAMINS [Concomitant]
     Active Substance: VITAMINS
  38. MACROBID [Concomitant]
     Active Substance: NITROFURANTOIN\NITROFURANTOIN MONOHYDRATE
  39. MAGNESIUM [Concomitant]
     Active Substance: MAGNESIUM

REACTIONS (13)
  - Decreased appetite [Unknown]
  - Nocturia [Unknown]
  - Mood altered [Unknown]
  - Pollakiuria [Unknown]
  - Muscle spasms [Unknown]
  - Poor quality sleep [Unknown]
  - Feeling abnormal [Unknown]
  - Urinary tract infection [Unknown]
  - Dizziness [Unknown]
  - Fatigue [Unknown]
  - Diarrhoea [Unknown]
  - Insomnia [Unknown]
  - Hot flush [Unknown]
